FAERS Safety Report 8141738-2 (Version None)
Quarter: 2012Q1

REPORT INFORMATION
  Report Type: 
  Country: None (occurrence: None)
  Receive Date: 20120216
  Receipt Date: 20120202
  Transmission Date: 20120608
  Serious: Yes (Other)
  Sender: FDA-Public Use
  Company Number: IT-CELGENEUS-083-20785-11121348

PATIENT
  Sex: Female

DRUGS (10)
  1. BISPHOSPHONATES [Concomitant]
     Route: 065
  2. BORTEZOMIB [Suspect]
     Indication: MULTIPLE MYELOMA
     Route: 041
     Dates: start: 20080530, end: 20110329
  3. THALIDOMIDE [Suspect]
     Route: 048
  4. VELCADE [Suspect]
     Route: 065
     Dates: start: 20110404
  5. THALIDOMIDE [Suspect]
     Indication: MULTIPLE MYELOMA
     Dosage: 1 CP/DAY
     Route: 048
     Dates: start: 20070706, end: 20100501
  6. VELCADE [Suspect]
     Indication: MULTIPLE MYELOMA
     Route: 065
     Dates: start: 20070706
  7. BORTEZOMIB [Suspect]
     Route: 065
  8. MELPHALAN HYDROCHLORIDE [Suspect]
     Indication: MULTIPLE MYELOMA
     Route: 065
  9. PREDNISONE [Suspect]
     Indication: MULTIPLE MYELOMA
     Route: 065
     Dates: start: 20070706
  10. ALKERAN [Suspect]
     Indication: MULTIPLE MYELOMA
     Dosage: 4 CP X 4 DAYS
     Route: 065
     Dates: start: 20070706

REACTIONS (1)
  - ACUTE MYELOID LEUKAEMIA [None]
